FAERS Safety Report 10239330 (Version 3)
Quarter: 2014Q3

REPORT INFORMATION
  Report Type: Spontaneous
  Country: JP (occurrence: JP)
  Receive Date: 20140616
  Receipt Date: 20140807
  Transmission Date: 20150326
  Serious: Yes (Other)
  Sender: FDA-Public Use
  Company Number: JP-BRISTOL-MYERS SQUIBB COMPANY-20816211

PATIENT
  Age: 35 Year
  Sex: Female

DRUGS (2)
  1. RITODRINE [Concomitant]
     Active Substance: RITODRINE
  2. ABILIFY [Suspect]
     Active Substance: ARIPIPRAZOLE
     Indication: SCHIZOPHRENIA
     Route: 048

REACTIONS (5)
  - Premature labour [Unknown]
  - Twin pregnancy [Recovered/Resolved]
  - Normal newborn [Unknown]
  - Placenta praevia [Unknown]
  - Exposure during pregnancy [Unknown]

NARRATIVE: CASE EVENT DATE: 20140724
